FAERS Safety Report 23245681 (Version 1)
Quarter: 2023Q4

REPORT INFORMATION
  Report Type: Spontaneous
  Country: CA (occurrence: CA)
  Receive Date: 20231130
  Receipt Date: 20231130
  Transmission Date: 20240109
  Serious: Yes (Other)
  Sender: FDA-Public Use
  Company Number: CA-OPELLA-2023OHG015214

PATIENT
  Age: 31 Year
  Sex: Male
  Weight: 77.11 kg

DRUGS (1)
  1. ALLEGRA-D [Suspect]
     Active Substance: FEXOFENADINE HYDROCHLORIDE\PSEUDOEPHEDRINE HYDROCHLORIDE
     Indication: Product used for unknown indication

REACTIONS (2)
  - Erectile dysfunction [Recovered/Resolved]
  - Anorgasmia [Recovered/Resolved]
